FAERS Safety Report 9701580 (Version 1)
Quarter: 2013Q4

REPORT INFORMATION
  Report Type: Report from Study
  Country: US (occurrence: US)
  Receive Date: 20131121
  Receipt Date: 20131121
  Transmission Date: 20140711
  Serious: Yes (Death, Other)
  Sender: FDA-Public Use
  Company Number: US-OTSUKA-US-2013-12156

PATIENT
  Age: 62 Year
  Sex: Female

DRUGS (5)
  1. BUSULFEX [Suspect]
     Indication: STEM CELL TRANSPLANT
     Dosage: 244.5 MG MILLIGRAM(S), QD
     Dates: start: 20060420, end: 20060423
  2. FLUDARABINE [Suspect]
     Indication: STEM CELL TRANSPLANT
     Dosage: 45 MG MILLIGRAM(S), QD
     Dates: start: 20060419, end: 20060423
  3. ALEMTUZUMAB [Suspect]
     Indication: STEM CELL TRANSPLANT
     Dosage: 20 MG MILLIGRAM(S), QD
     Dates: start: 20060419, end: 20060423
  4. CLONAZEPAM [Suspect]
     Indication: CONVULSION
  5. MELPHALAN [Suspect]
     Indication: STEM CELL TRANSPLANT
     Dosage: 244.5 MG MILLIGRAM(S), QD
     Dates: start: 20060420, end: 20060423

REACTIONS (1)
  - Cardiac arrest [Fatal]
